FAERS Safety Report 4526850-9 (Version None)
Quarter: 2004Q4

REPORT INFORMATION
  Report Type: 
  Country: None (occurrence: None)
  Receive Date: 20041214
  Receipt Date: 20041206
  Transmission Date: 20050328
  Serious: Yes (Other)
  Sender: FDA-Public Use
  Company Number: GB-ABBOTT-04P-167-0282653-00

PATIENT
  Age: 40 Year
  Sex: Female
  Weight: 92 kg

DRUGS (3)
  1. MERIDIA [Suspect]
     Indication: OBESITY
     Route: 048
     Dates: start: 20041023, end: 20041106
  2. KETOCONAZOLE [Concomitant]
     Indication: RASH
     Route: 061
     Dates: start: 20041013
  3. BETAMETHASONE [Concomitant]
     Indication: RASH
     Route: 061
     Dates: start: 20040915, end: 20040923

REACTIONS (4)
  - HEADACHE [None]
  - MIGRAINE [None]
  - RETINAL DETACHMENT [None]
  - VISUAL DISTURBANCE [None]
